FAERS Safety Report 22010955 (Version 3)
Quarter: 2023Q1

REPORT INFORMATION
  Report Type: Spontaneous
  Country: US (occurrence: US)
  Receive Date: 20230220
  Receipt Date: 20230320
  Transmission Date: 20230418
  Serious: No
  Sender: FDA-Public Use
  Company Number: US-SA-SAC20230217000484

PATIENT
  Sex: Male
  Weight: 77.1 kg

DRUGS (2)
  1. DUPIXENT [Suspect]
     Active Substance: DUPILUMAB
     Indication: Nasal polyps
     Dosage: 300 MG, QOW
     Route: 058
     Dates: start: 202207
  2. TADALAFIL [Concomitant]
     Active Substance: TADALAFIL

REACTIONS (6)
  - Respiratory disorder [Unknown]
  - Dyspnoea [Unknown]
  - Nasal congestion [Recovering/Resolving]
  - Nasopharyngitis [Unknown]
  - Nasal polyps [Recovering/Resolving]
  - Condition aggravated [Recovering/Resolving]
